FAERS Safety Report 8468693 (Version 3)
Quarter: 2013Q1

REPORT INFORMATION
  Report Type: Spontaneous
  Country: US (occurrence: US)
  Receive Date: 20120320
  Receipt Date: 20130201
  Transmission Date: 20140127
  Serious: Yes (Hospitalization, Other)
  Sender: FDA-Public Use
  Company Number: CHPA2012US002942

PATIENT
  Age: 45 Year
  Sex: Male
  Weight: 90.7 kg

DRUGS (1)
  1. EXCEDRIN EXTRA STRENGTH [Suspect]
     Dosage: UNK , UNK
     Route: 048
     Dates: end: 20110924

REACTIONS (9)
  - Hypersensitivity [Recovered/Resolved]
  - Malaise [Recovered/Resolved]
  - Lip swelling [Recovered/Resolved]
  - Asthma [Recovered/Resolved]
  - Dyspnoea [Recovered/Resolved]
  - Erythema [Recovered/Resolved]
  - Dysphonia [Recovered/Resolved]
  - Nasal congestion [Recovered/Resolved]
  - Eyelid oedema [Recovered/Resolved]
